FAERS Safety Report 9833101 (Version 1)
Quarter: 2014Q1

REPORT INFORMATION
  Report Type: Spontaneous
  Country: AR (occurrence: AR)
  Receive Date: 20140121
  Receipt Date: 20140121
  Transmission Date: 20141002
  Serious: Yes (Other)
  Sender: FDA-Public Use
  Company Number: AR-PFIZER INC-2014016702

PATIENT
  Age: 69 Year
  Sex: Female

DRUGS (1)
  1. RAPAMUNE [Suspect]
     Indication: LIVER TRANSPLANT
     Dosage: 2 MG, DAILY
     Dates: start: 20120123

REACTIONS (2)
  - Hip fracture [Recovering/Resolving]
  - Off label use [Unknown]
